FAERS Safety Report 5000531-X (Version None)
Quarter: 2006Q2

REPORT INFORMATION
  Report Type: 
  Country: None (occurrence: None)
  Receive Date: 20060512
  Receipt Date: 20050419
  Transmission Date: 20061013
  Serious: No
  Sender: FDA-Public Use
  Company Number: US-BRISTOL-MYERS SQUIBB COMPANY-12938726

PATIENT

DRUGS (2)
  1. CYTOXAN [Suspect]
  2. ADRIAMYCIN PFS [Suspect]

REACTIONS (1)
  - CHEST PAIN [None]
